FAERS Safety Report 4866883-6 (Version None)
Quarter: 2005Q4

REPORT INFORMATION
  Report Type: 
  Country: None (occurrence: None)
  Receive Date: 20051222
  Receipt Date: 20051210
  Transmission Date: 20060501
  Serious: Yes (Hospitalization)
  Sender: FDA-Public Use
  Company Number: IT200512001951

PATIENT
  Age: 31 Year
  Sex: Male
  Weight: 55 kg

DRUGS (3)
  1. ZYPREXA [Suspect]
     Indication: SCHIZOPHRENIA
     Dosage: 20 MG, DAILY (1/D), ORAL
     Route: 048
     Dates: start: 20051205, end: 20051210
  2. ZOLOFT [Concomitant]
  3. RISPERIDONE [Concomitant]

REACTIONS (3)
  - BLOOD CREATINE PHOSPHOKINASE INCREASED [None]
  - FACE OEDEMA [None]
  - PROTEINURIA [None]
